FAERS Safety Report 19890093 (Version 1)
Quarter: 2021Q3

REPORT INFORMATION
  Report Type: Spontaneous
  Country: CO (occurrence: CO)
  Receive Date: 20210927
  Receipt Date: 20210927
  Transmission Date: 20211014
  Serious: Yes (Hospitalization)
  Sender: FDA-Public Use
  Company Number: CO-PFIZER INC-202101218823

PATIENT
  Age: 61 Year
  Sex: Female

DRUGS (2)
  1. FULVESTRANT. [Suspect]
     Active Substance: FULVESTRANT
  2. REAMPLA [Suspect]
     Active Substance: PALBOCICLIB
     Indication: BREAST CANCER METASTATIC
     Dosage: 75 MG, CYCLIC (TAKES 21 DAYS AND 10 OR 20 RESTS)
     Route: 048
     Dates: start: 20200313

REACTIONS (3)
  - Off label use [Unknown]
  - Femur fracture [Unknown]
  - Fall [Unknown]
